FAERS Safety Report 4507721-0 (Version None)
Quarter: 2004Q4

REPORT INFORMATION
  Report Type: 
  Country: None (occurrence: None)
  Receive Date: 20040928
  Receipt Date: 20040707
  Transmission Date: 20050328
  Serious: No
  Sender: FDA-Public Use
  Company Number: 04P-163-0266236-00

PATIENT
  Age: 59 Year
  Sex: Female
  Weight: 140.4 kg

DRUGS (15)
  1. HUMIRA [Suspect]
     Indication: PSORIATIC ARTHROPATHY
     Dosage: 40 MG, 1 IN 2 WK, SUBCUTANEOUS
     Route: 058
     Dates: start: 20040601
  2. HUMIRA [Suspect]
     Indication: RHEUMATOID ARTHRITIS
     Dosage: 40 MG, 1 IN 2 WK, SUBCUTANEOUS
     Route: 058
     Dates: start: 20040601
  3. VICODIN [Concomitant]
  4. IMITREX [Concomitant]
  5. GABAPENTIN [Concomitant]
  6. ESTROGEN NOS [Concomitant]
  7. LOSARTAN POTASSIUM [Concomitant]
  8. METFORMIN HCL [Concomitant]
  9. ROSIGLITAZONE MALEATE [Concomitant]
  10. TETRACYCLINE HYDROCHLORIDE [Concomitant]
  11. METAXALONE [Concomitant]
  12. VERAPAMIL [Concomitant]
  13. LEVOTHYROXINE SODIUM [Concomitant]
  14. CHLORHEXIDINE GLUCONATE [Concomitant]
  15. NAPROXEN [Concomitant]

REACTIONS (1)
  - BREAST CANCER [None]
